FAERS Safety Report 4661779-7 (Version None)
Quarter: 2005Q2

REPORT INFORMATION
  Report Type: 
  Country: None (occurrence: None)
  Receive Date: 20050512
  Receipt Date: 20050512
  Transmission Date: 20051028
  Serious: Yes (Other)
  Sender: FDA-Public Use
  Company Number: None

PATIENT
  Age: 46 Year
  Sex: Female
  Weight: 67.1324 kg

DRUGS (1)
  1. BUPROPRION 150 MG BID PO [Suspect]
     Indication: DEPRESSION
     Dosage: 150 MG PO BID
     Route: 048
     Dates: start: 20041201, end: 20040101

REACTIONS (3)
  - HEADACHE [None]
  - MIGRAINE [None]
  - PHARMACEUTICAL PRODUCT COMPLAINT [None]
